FAERS Safety Report 10640973 (Version 4)
Quarter: 2015Q3

REPORT INFORMATION
  Report Type: Report from Study
  Country: US (occurrence: US)
  Receive Date: 20141209
  Receipt Date: 20150811
  Transmission Date: 20151125
  Serious: Yes (Other)
  Sender: FDA-Public Use
  Company Number: US-SANOFI-AVENTIS-2013SA085572

PATIENT
  Age: 53 Year
  Sex: Male

DRUGS (7)
  1. ZOCOR [Concomitant]
     Active Substance: SIMVASTATIN
  2. PREDNISONE. [Concomitant]
     Active Substance: PREDNISONE
     Dosage: TWICE MONTHLY 500 MG EACH TIME
  3. CORTICOSTEROID NOS [Concomitant]
     Active Substance: CORTICOSTEROID NOS
     Dates: start: 201307
  4. AUBAGIO [Suspect]
     Active Substance: TERIFLUNOMIDE
     Indication: MULTIPLE SCLEROSIS
     Route: 048
     Dates: start: 20130711
  5. VITAMIN D [Concomitant]
     Active Substance: CHOLECALCIFEROL
     Dosage: BOLUS
  6. BIOTIN [Concomitant]
     Active Substance: BIOTIN
     Dosage: DOSE:1000 UNIT(S)
  7. ZOCOR [Concomitant]
     Active Substance: SIMVASTATIN

REACTIONS (6)
  - Tic [Unknown]
  - Alopecia [Not Recovered/Not Resolved]
  - Mobility decreased [Not Recovered/Not Resolved]
  - Chromaturia [Unknown]
  - Urine analysis abnormal [Unknown]
  - Paraesthesia [Unknown]

NARRATIVE: CASE EVENT DATE: 2013
